FAERS Safety Report 15403264 (Version 1)
Quarter: 2018Q3

REPORT INFORMATION
  Report Type: Spontaneous
  Country: US (occurrence: US)
  Receive Date: 20180919
  Receipt Date: 20180919
  Transmission Date: 20181010
  Serious: No
  Sender: FDA-Public Use
  Company Number: US-TEVA-2018-US-954448

PATIENT
  Sex: Female

DRUGS (2)
  1. MICONAZOLE. [Suspect]
     Active Substance: MICONAZOLE
     Indication: PRURITUS
     Route: 065
  2. MICONAZOLE. [Suspect]
     Active Substance: MICONAZOLE
     Indication: SKIN IRRITATION

REACTIONS (2)
  - Pruritus [Unknown]
  - Skin irritation [Unknown]
